FAERS Safety Report 5241664-2 (Version None)
Quarter: 2007Q1

REPORT INFORMATION
  Report Type: 
  Country: None (occurrence: None)
  Receive Date: 20070220
  Receipt Date: 20070208
  Transmission Date: 20070707
  Serious: Yes (Hospitalization, Other)
  Sender: FDA-Public Use
  Company Number: US-ELI_LILLY_AND_COMPANY-US200702001679

PATIENT
  Age: 89 Year
  Sex: Female

DRUGS (7)
  1. FORTEO [Suspect]
     Dates: start: 20050401
  2. LIPITOR [Concomitant]
     Indication: BLOOD CHOLESTEROL
  3. SYNTHROID [Concomitant]
     Indication: THYROID DISORDER
  4. OSCAL [Concomitant]
  5. MULTI-VITAMIN [Concomitant]
  6. LASIX [Concomitant]
  7. VITAMIN B-12 [Concomitant]
     Indication: VITAMIN B12 DECREASED
     Route: 058

REACTIONS (12)
  - ASTHENOPIA [None]
  - BLOOD CHOLESTEROL ABNORMAL [None]
  - CARDIAC DISORDER [None]
  - CEREBROVASCULAR ACCIDENT [None]
  - DRUG INTERACTION [None]
  - DYSPHAGIA [None]
  - FACIAL PALSY [None]
  - HEART RATE DECREASED [None]
  - PAIN [None]
  - RECTAL PROLAPSE [None]
  - VENTRICULAR EXTRASYSTOLES [None]
  - VISUAL DISTURBANCE [None]
